FAERS Safety Report 5067646-1 (Version None)
Quarter: 2006Q3

REPORT INFORMATION
  Report Type: 
  Country: None (occurrence: None)
  Receive Date: 20060802
  Receipt Date: 20060724
  Transmission Date: 20061208
  Serious: Yes (Other)
  Sender: FDA-Public Use
  Company Number: GBWYE352425JUL06

PATIENT
  Sex: Female

DRUGS (2)
  1. ENBREL [Suspect]
     Indication: DRUG USE FOR UNKNOWN INDICATION
     Route: 058
     Dates: start: 20030101, end: 20060701
  2. METHOTREXATE [Suspect]
     Dosage: UNKNOWN
     Route: 065

REACTIONS (1)
  - NEUTROPHIL COUNT DECREASED [None]
